FAERS Safety Report 12885971 (Version 3)
Quarter: 2016Q4

REPORT INFORMATION
  Report Type: Spontaneous
  Country: US (occurrence: US)
  Receive Date: 20161026
  Receipt Date: 20161125
  Transmission Date: 20170207
  Serious: Yes (Hospitalization)
  Sender: FDA-Public Use
  Company Number: US-UNITED THERAPEUTICS-UNT-2016-016198

PATIENT
  Age: 52 Year
  Sex: Female
  Weight: 63.49 kg

DRUGS (4)
  1. ADCIRCA [Concomitant]
     Active Substance: TADALAFIL
     Indication: PRODUCT USED FOR UNKNOWN INDICATION
  2. TYVASO [Suspect]
     Active Substance: TREPROSTINIL
     Indication: PULMONARY HYPERTENSION
     Dosage: 18-72 MICROGRAMS, QID
     Dates: start: 20141201
  3. LETAIRIS [Suspect]
     Active Substance: AMBRISENTAN
     Indication: SCLERODERMA
     Dosage: UNK
     Dates: start: 201609
  4. LETAIRIS [Suspect]
     Active Substance: AMBRISENTAN
     Indication: PULMONARY ARTERIAL HYPERTENSION
     Dosage: 10 MG, QD
     Route: 065
     Dates: end: 201609

REACTIONS (3)
  - Scleroderma [Unknown]
  - Pericarditis [Recovered/Resolved]
  - Product use issue [Unknown]

NARRATIVE: CASE EVENT DATE: 20160923
